FAERS Safety Report 15122689 (Version 1)
Quarter: 2018Q3

REPORT INFORMATION
  Report Type: Report from Study
  Country: FR (occurrence: FR)
  Receive Date: 20180709
  Receipt Date: 20180709
  Transmission Date: 20181010
  Serious: Yes (Death)
  Sender: FDA-Public Use
  Company Number: FR-CHIESI USA INC.-FR-2018CHI000171

PATIENT
  Age: 4 Day
  Sex: Female
  Weight: 1.41 kg

DRUGS (1)
  1. CUROSURF [Suspect]
     Active Substance: PORACTANT ALFA
     Indication: NEONATAL RESPIRATORY DISTRESS SYNDROME
     Dosage: 170 MG/KG, UNK
     Route: 007
     Dates: start: 20180511, end: 20180511

REACTIONS (1)
  - Intraventricular haemorrhage neonatal [Fatal]

NARRATIVE: CASE EVENT DATE: 20180515
